FAERS Safety Report 8970748 (Version 1)
Quarter: 2012Q4

REPORT INFORMATION
  Report Type: 
  Country: US (occurrence: US)
  Receive Date: 20121217
  Receipt Date: 20121217
  Transmission Date: 20130627
  Serious: No
  Sender: FDA-Public Use
  Company Number: US-TEVA-374245USA

PATIENT
  Sex: Female
  Weight: 90.8 kg

DRUGS (8)
  1. QNASL [Suspect]
     Indication: RHINITIS SEASONAL
     Dosage: 360 mcg daily
     Route: 045
     Dates: start: 201211, end: 20121201
  2. QNASL [Suspect]
     Indication: RHINITIS PERENNIAL
  3. CETIRIZINE [Concomitant]
     Indication: HYPERSENSITIVITY
     Dosage: 5 Milligram Daily;
     Route: 048
  4. MONTELUKAST [Concomitant]
     Indication: RHINITIS SEASONAL
     Route: 048
  5. MONTELUKAST [Concomitant]
     Indication: RHINITIS PERENNIAL
  6. LISINOPRIL [Concomitant]
     Indication: HYPERTENSION
     Dosage: 20 Milligram Daily;
     Route: 048
  7. OXYCONTIN [Concomitant]
     Indication: PAIN
     Dosage: 10 Milligram Daily;
     Route: 048
  8. HYDROCODONE W/ACETAMINOPHEN [Concomitant]
     Indication: PAIN
     Dosage: 7.5 mg/325 mg TID
     Route: 048

REACTIONS (3)
  - Nasal discomfort [Recovered/Resolved]
  - Sneezing [Recovered/Resolved]
  - Pruritus [Recovering/Resolving]
